FAERS Safety Report 5168195-2 (Version None)
Quarter: 2006Q4

REPORT INFORMATION
  Report Type: 
  Country: None (occurrence: None)
  Receive Date: 20061130
  Receipt Date: 20061122
  Transmission Date: 20070319
  Serious: Yes (Hospitalization)
  Sender: FDA-Public Use
  Company Number: 163-20785-06111182

PATIENT
  Age: 48 Year
  Sex: Female

DRUGS (7)
  1. THALOMID [Suspect]
     Indication: MULTIPLE MYELOMA
     Dosage: 100 MG, 1 IN 1 D, ORAL
     Route: 048
     Dates: start: 20051001, end: 20051101
  2. SYNTHROID [Concomitant]
  3. ATENOLOL [Concomitant]
  4. NORVASC [Concomitant]
  5. COLACE (DOCUSATE SODIUM) [Concomitant]
  6. NEXIUM [Concomitant]
  7. ACYCLOVIR [Concomitant]

REACTIONS (4)
  - BLOOD DISORDER [None]
  - CONDITION AGGRAVATED [None]
  - INFECTION [None]
  - VAGINAL HAEMORRHAGE [None]
